FAERS Safety Report 5000176-1 (Version None)
Quarter: 2006Q2

REPORT INFORMATION
  Report Type: 
  Country: None (occurrence: None)
  Receive Date: 20060504
  Receipt Date: 20060426
  Transmission Date: 20061013
  Serious: Yes (Hospitalization)
  Sender: FDA-Public Use
  Company Number: 200609944

PATIENT
  Age: 66 Year
  Sex: Female
  Weight: 53 kg

DRUGS (10)
  1. SANDOGLOBULIN [Suspect]
     Indication: POLYMYOSITIS
     Dosage: SEE IMAGE
     Route: 042
     Dates: start: 20060210, end: 20060211
  2. SANDOGLOBULIN [Suspect]
     Indication: POLYMYOSITIS
     Dosage: SEE IMAGE
     Route: 042
     Dates: start: 20060210, end: 20060211
  3. SANDOGLOBULIN [Suspect]
     Indication: POLYMYOSITIS
     Dosage: SEE IMAGE
     Route: 042
     Dates: start: 20060311, end: 20060312
  4. SANDOGLOBULIN [Suspect]
     Indication: POLYMYOSITIS
     Dosage: SEE IMAGE
     Route: 042
     Dates: start: 20060311, end: 20060312
  5. SANDOGLOBULIN [Suspect]
     Indication: POLYMYOSITIS
     Dosage: SEE IMAGE
     Route: 042
     Dates: start: 20060311, end: 20060312
  6. SANDOGLOBULIN [Suspect]
  7. SANDOGLOBULIN [Concomitant]
  8. SANDOGLOBULIN [Concomitant]
  9. SANDOGLOBULIN [Suspect]
  10. MOPRAL [Concomitant]

REACTIONS (3)
  - AGRANULOCYTOSIS [None]
  - NEUTROPENIA [None]
  - THROMBOCYTOPENIA [None]
